FAERS Safety Report 8167345-3 (Version None)
Quarter: 2012Q1

REPORT INFORMATION
  Report Type: 
  Country: None (occurrence: None)
  Receive Date: 20120227
  Receipt Date: 20120217
  Transmission Date: 20120608
  Serious: Yes (Hospitalization)
  Sender: FDA-Public Use
  Company Number: US-UCBSA-051881

PATIENT
  Age: 79 Year
  Sex: Male

DRUGS (10)
  1. METOLAZONE [Suspect]
     Indication: CARDIAC FAILURE CONGESTIVE
  2. ANGIOTENSIN CONVERTING ENZYME INHIBITOR [Concomitant]
  3. INSULIN DETEMIR [Suspect]
     Indication: TYPE 2 DIABETES MELLITUS
     Dosage: 100 IU
  4. INSULIN ASPART [Suspect]
     Indication: TYPE 2 DIABETES MELLITUS
     Dosage: 140 IU
  5. STATIN [Concomitant]
  6. LISINOPRIL [Suspect]
  7. SAXAGLIPTIN/PLACEBO [Suspect]
     Indication: TYPE 2 DIABETES MELLITUS
     Dates: start: 20101230
  8. ASPIRIN [Concomitant]
  9. DIURETICS [Concomitant]
  10. CALCIUM ANTAGONIST [Concomitant]

REACTIONS (2)
  - FALL [None]
  - HYPOTENSION [None]
